FAERS Safety Report 5821789-0 (Version None)
Quarter: 2008Q3

REPORT INFORMATION
  Report Type: 
  Country: None (occurrence: None)
  Receive Date: 20080724
  Receipt Date: 20080714
  Transmission Date: 20090109
  Serious: Yes (Other)
  Sender: FDA-Public Use
  Company Number: US-PFIZER INC-2008040698

PATIENT
  Sex: Female
  Weight: 99.8 kg

DRUGS (2)
  1. CELEBREX [Suspect]
     Indication: PAIN MANAGEMENT
     Route: 048
  2. CELEBREX [Suspect]
     Indication: ARTHRITIS

REACTIONS (10)
  - ANOREXIA [None]
  - CARDIOVASCULAR DISORDER [None]
  - CATARACT [None]
  - CONSTIPATION [None]
  - GASTROINTESTINAL HAEMORRHAGE [None]
  - INSOMNIA [None]
  - MIGRAINE [None]
  - MYALGIA [None]
  - PARAESTHESIA [None]
  - WEIGHT DECREASED [None]
